FAERS Safety Report 7383865-3 (Version None)
Quarter: 2011Q1

REPORT INFORMATION
  Report Type: 
  Country: None (occurrence: None)
  Receive Date: 20110330
  Receipt Date: 20110322
  Transmission Date: 20110831
  Serious: Yes (Hospitalization)
  Sender: FDA-Public Use
  Company Number: GB-ABBOTT-11P-167-0713720-00

PATIENT
  Age: 70 Year
  Sex: Male

DRUGS (4)
  1. KEPPRA [Suspect]
  2. EPILIM CHRONO [Suspect]
     Indication: EPILEPSY
     Route: 065
  3. EPILIM CHRONO [Suspect]
  4. KEPPRA [Suspect]
     Indication: EPILEPSY
     Route: 065

REACTIONS (4)
  - COMPLEX PARTIAL SEIZURES [None]
  - GRAND MAL CONVULSION [None]
  - DRUG INEFFECTIVE [None]
  - TREMOR [None]
